FAERS Safety Report 7807790-6 (Version None)
Quarter: 2011Q4

REPORT INFORMATION
  Report Type: 
  Country: None (occurrence: None)
  Receive Date: 20111011
  Receipt Date: 20111006
  Transmission Date: 20120403
  Serious: Yes (Other)
  Sender: FDA-Public Use
  Company Number: DE-SANOFI-AVENTIS-2011SA065331

PATIENT
  Age: 56 Year
  Sex: Female

DRUGS (5)
  1. LEFLUNOMIDE [Suspect]
     Indication: RHEUMATOID ARTHRITIS
     Route: 048
     Dates: start: 20110101
  2. PANTOPRAZOLE [Concomitant]
  3. LOSARTAN POTASSIUM [Concomitant]
  4. BISOPROLOL [Concomitant]
  5. LEVOTHYROXINE SODIUM [Concomitant]

REACTIONS (3)
  - GASTRIC HAEMORRHAGE [None]
  - ABDOMINAL PAIN UPPER [None]
  - GASTRITIS [None]
